FAERS Safety Report 16332562 (Version 1)
Quarter: 2019Q2

REPORT INFORMATION
  Report Type: Spontaneous
  Country: US (occurrence: US)
  Receive Date: 20190412
  Receipt Date: 20190412
  Transmission Date: 20190711
  Serious: Yes (Hospitalization)
  Sender: FDA-Public Use
  Company Number: None

PATIENT
  Age: 82 Year
  Sex: Female

DRUGS (15)
  1. LIPIDOR [Concomitant]
  2. DULCOLAX NOS [Concomitant]
     Active Substance: BISACODYL OR DOCUSATE SODIUM
  3. SENNA [Concomitant]
     Active Substance: SENNA LEAF\SENNOSIDES\SENNOSIDES A AND B
  4. CLONASE [Concomitant]
  5. COLACE [Concomitant]
     Active Substance: DOCUSATE SODIUM
  6. BUSPIRONE [Concomitant]
     Active Substance: BUSPIRONE HYDROCHLORIDE
  7. FLUOXETINE [Concomitant]
     Active Substance: FLUOXETINE HYDROCHLORIDE
  8. NITROSTAT [Concomitant]
     Active Substance: NITROGLYCERIN
  9. METOPROLOL. [Concomitant]
     Active Substance: METOPROLOL
  10. LETAIRIS [Suspect]
     Active Substance: AMBRISENTAN
     Indication: PULMONARY ARTERIAL HYPERTENSION
     Route: 048
     Dates: start: 201505
  11. ADVAIR HFA [Concomitant]
     Active Substance: FLUTICASONE PROPIONATE\SALMETEROL XINAFOATE
  12. GABAPENTIN. [Concomitant]
     Active Substance: GABAPENTIN
  13. PLAVIX [Concomitant]
     Active Substance: CLOPIDOGREL BISULFATE
  14. MILK OF MAGNESIA [Concomitant]
     Active Substance: MAGNESIUM HYDROXIDE
  15. VITAMIN D3 [Concomitant]
     Active Substance: CHOLECALCIFEROL

REACTIONS (2)
  - Ischaemic stroke [None]
  - Chest discomfort [None]

NARRATIVE: CASE EVENT DATE: 20190317
